FAERS Safety Report 21349216 (Version 2)
Quarter: 2022Q4

REPORT INFORMATION
  Report Type: Report from Study
  Country: FR (occurrence: FR)
  Receive Date: 20220919
  Receipt Date: 20221014
  Transmission Date: 20230112
  Serious: Yes (Death, Hospitalization)
  Sender: FDA-Public Use
  Company Number: FR-NOVARTISPH-NVSC2022FR210475

PATIENT

DRUGS (3)
  1. PLUVICTO [Suspect]
     Active Substance: LUTETIUM LU-177 VIPIVOTIDE TETRAXETAN
     Indication: Hormone-refractory prostate cancer
     Dosage: 7066 MBQ, ONCE/SINGLE
     Route: 042
     Dates: start: 20220426, end: 20220426
  2. PLUVICTO [Suspect]
     Active Substance: LUTETIUM LU-177 VIPIVOTIDE TETRAXETAN
     Dosage: 7177 MBQ, ONCE/SINGLE
     Route: 042
     Dates: start: 20220613, end: 20220613
  3. PLUVICTO [Suspect]
     Active Substance: LUTETIUM LU-177 VIPIVOTIDE TETRAXETAN
     Dosage: 7009 MBQ, ONCE/SINGLE
     Route: 042
     Dates: start: 20220805, end: 20220805

REACTIONS (2)
  - Pulmonary embolism [Fatal]
  - General physical health deterioration [Fatal]
